FAERS Safety Report 17644455 (Version 1)
Quarter: 2020Q2

REPORT INFORMATION
  Report Type: Spontaneous
  Country: BR (occurrence: BR)
  Receive Date: 20200408
  Receipt Date: 20200408
  Transmission Date: 20200713
  Serious: Yes (Life-Threatening, Other)
  Sender: FDA-Public Use
  Company Number: BR-GLAXOSMITHKLINE-BR2020060117

PATIENT
  Sex: Female

DRUGS (3)
  1. AEROLIN [Suspect]
     Active Substance: ALBUTEROL
     Indication: ASPIRATION
     Dosage: UNK
  2. CHOLESTEROL [Concomitant]
     Active Substance: CHOLESTEROL
     Indication: PRODUCT USED FOR UNKNOWN INDICATION
     Dosage: UNK
  3. SERETIDE [Suspect]
     Active Substance: FLUTICASONE PROPIONATE\SALMETEROL XINAFOATE
     Indication: PRODUCT USED FOR UNKNOWN INDICATION
     Dosage: UNK

REACTIONS (12)
  - Product use issue [Unknown]
  - Tooth fracture [Recovered/Resolved]
  - Urinary retention [Unknown]
  - Chest injury [Recovered/Resolved]
  - Inappropriate schedule of product administration [Unknown]
  - Cardiomyopathy [Unknown]
  - Facial bones fracture [Recovered/Resolved]
  - Spinal pain [Recovered/Resolved]
  - Fall [Recovered/Resolved]
  - Cardiac pacemaker insertion [Unknown]
  - Arrhythmia [Recovered/Resolved]
  - Treatment noncompliance [Unknown]
